FAERS Safety Report 20827447 (Version 1)
Quarter: 2022Q2

REPORT INFORMATION
  Report Type: Spontaneous
  Country: US (occurrence: US)
  Receive Date: 20220513
  Receipt Date: 20220513
  Transmission Date: 20220721
  Serious: Yes (Other)
  Sender: FDA-Public Use
  Company Number: US-TEVA-2022-US-2036219

PATIENT
  Sex: Male
  Weight: 63.49 kg

DRUGS (2)
  1. SOTALOL [Suspect]
     Active Substance: SOTALOL
     Indication: Product used for unknown indication
     Route: 065
  2. JAKAFI [Suspect]
     Active Substance: RUXOLITINIB
     Indication: Polycythaemia vera
     Route: 048
     Dates: start: 20211202

REACTIONS (7)
  - Bradycardia [Unknown]
  - Deafness unilateral [Unknown]
  - Vertigo [Unknown]
  - Dizziness [Unknown]
  - Contusion [Recovered/Resolved]
  - Mass [Unknown]
  - Haematoma [Unknown]
